FAERS Safety Report 21170020 (Version 2)
Quarter: 2025Q2

REPORT INFORMATION
  Report Type: Report from Study
  Country: FR (occurrence: FR)
  Receive Date: 20220804
  Receipt Date: 20250621
  Transmission Date: 20250716
  Serious: Yes (Other)
  Sender: AUROBINDO
  Company Number: FR-EMA-DD-20220721-7182781-084317

PATIENT
  Sex: Female

DRUGS (2)
  1. ERTAPENEM [Suspect]
     Active Substance: ERTAPENEM
     Indication: Urinary tract infection enterococcal
     Dosage: 1 GRAM, ONCE A DAY
     Route: 058
  2. LIDOCAINE [Suspect]
     Active Substance: LIDOCAINE
     Indication: Urinary tract infection enterococcal
     Route: 058

REACTIONS (4)
  - Skin necrosis [Recovered/Resolved]
  - Off label use [Unknown]
  - Intentional product misuse [Recovered/Resolved]
  - Product use issue [Recovered/Resolved]
